FAERS Safety Report 24698996 (Version 1)
Quarter: 2024Q4

REPORT INFORMATION
  Report Type: Spontaneous
  Country: US (occurrence: US)
  Receive Date: 20241205
  Receipt Date: 20241205
  Transmission Date: 20250115
  Serious: Yes (Hospitalization)
  Sender: APOTEX
  Company Number: US-APOTEX-2024AP019259

PATIENT
  Age: 62 Year
  Sex: Male

DRUGS (2)
  1. DOXYCYCLINE [Suspect]
     Active Substance: DOXYCYCLINE
     Indication: Osteomyelitis
     Dosage: 100 MILLIGRAM, BID
     Route: 065
  2. ERYTHROMYCIN [Suspect]
     Active Substance: ERYTHROMYCIN
     Indication: Osteomyelitis
     Dosage: 500 MILLIGRAM, QID
     Route: 065

REACTIONS (2)
  - Hyperoxaluria [Unknown]
  - Condition aggravated [Unknown]
